FAERS Safety Report 6560827-7 (Version None)
Quarter: 2010Q1

REPORT INFORMATION
  Report Type: 
  Country: None (occurrence: None)
  Receive Date: 20100129
  Receipt Date: 20090928
  Transmission Date: 20100710
  Serious: No
  Sender: FDA-Public Use
  Company Number: US-ABBOTT-09P-163-0599573-00

PATIENT
  Sex: Female
  Weight: 74.002 kg

DRUGS (1)
  1. HUMIRA [Suspect]
     Indication: RHEUMATOID ARTHRITIS
     Dates: start: 20070901, end: 20090904

REACTIONS (3)
  - ANIMAL SCRATCH [None]
  - VAGINAL INFECTION [None]
  - WOUND INFECTION [None]
